FAERS Safety Report 7747825-2 (Version None)
Quarter: 2011Q3

REPORT INFORMATION
  Report Type: 
  Country: None (occurrence: None)
  Receive Date: 20110913
  Receipt Date: 20110902
  Transmission Date: 20111222
  Serious: Yes (Other)
  Sender: FDA-Public Use
  Company Number: CA-JNJFOC-20110902878

PATIENT
  Sex: Female
  Weight: 95 kg

DRUGS (11)
  1. REMICADE [Suspect]
     Route: 042
     Dates: start: 20110902
  2. FUROSEMIDE [Concomitant]
  3. ASPIRIN [Concomitant]
  4. REMICADE [Suspect]
     Dosage: TOTAL 81 INFUSIONS
     Route: 042
     Dates: start: 20020904
  5. CRESTOR [Concomitant]
  6. REMICADE [Suspect]
     Route: 042
     Dates: start: 20110722
  7. METOPROLOL TARTRATE [Concomitant]
  8. LEFLUNOMIDE [Concomitant]
     Dosage: I TAB EVERY 2ND DAY
  9. MISOPROSTOL [Concomitant]
  10. REMICADE [Suspect]
     Indication: RHEUMATOID ARTHRITIS
     Route: 042
  11. TYLENOL-500 [Concomitant]

REACTIONS (3)
  - SYNCOPE [None]
  - INFUSION RELATED REACTION [None]
  - VOMITING [None]
